FAERS Safety Report 9270492 (Version 3)
Quarter: 2014Q1

REPORT INFORMATION
  Report Type: Spontaneous
  Country: US (occurrence: US)
  Receive Date: 20130503
  Receipt Date: 20140313
  Transmission Date: 20141002
  Serious: No
  Sender: FDA-Public Use
  Company Number: US-009507513-1305USA000887

PATIENT
  Sex: Male
  Weight: 74.38 kg

DRUGS (2)
  1. PROPECIA [Suspect]
     Indication: ALOPECIA
     Dosage: 1 MG, QD
     Route: 048
     Dates: start: 20060127, end: 20080123
  2. PROPECIA [Suspect]
     Dosage: 1 MG, QD
     Route: 048
     Dates: start: 20080617, end: 201201

REACTIONS (3)
  - Hyperlipidaemia [Unknown]
  - Erectile dysfunction [Unknown]
  - Libido decreased [Unknown]
